FAERS Safety Report 16623134 (Version 2)
Quarter: 2019Q3

REPORT INFORMATION
  Report Type: Spontaneous
  Country: CH (occurrence: CH)
  Receive Date: 20190723
  Receipt Date: 20190725
  Transmission Date: 20191004
  Serious: Yes (Other)
  Sender: FDA-Public Use
  Company Number: CH-MYLANLABS-2019M1066159

PATIENT
  Sex: Male

DRUGS (10)
  1. KLACID IV 500MG [Suspect]
     Active Substance: CLARITHROMYCIN
     Indication: UROSEPSIS
     Dosage: 500 MILLIGRAM, BID
     Dates: start: 20190710, end: 20190710
  2. KLACID IV 500MG [Suspect]
     Active Substance: CLARITHROMYCIN
     Indication: PNEUMONIA
     Dosage: UNK
     Route: 042
     Dates: start: 20190710, end: 20190711
  3. PROSTAGUTT [Concomitant]
     Dosage: UNK
  4. ASPIRIN CARDIO [Concomitant]
     Active Substance: ASPIRIN
     Dosage: UNK
  5. PRIMPERAN [Concomitant]
     Active Substance: METOCLOPRAMIDE HYDROCHLORIDE
     Dosage: UNK
  6. SEROQUEL [Concomitant]
     Active Substance: QUETIAPINE FUMARATE
     Dosage: UNK
  7. QUETIAPIN [Concomitant]
     Active Substance: QUETIAPINE
     Dosage: UNK
  8. HALDOL [Concomitant]
     Active Substance: HALOPERIDOL
     Dosage: UNK
  9. NOVALGIN                           /00169801/ [Concomitant]
     Active Substance: ACETAMINOPHEN\CAFFEINE\PROPYPHENAZONE
     Dosage: UNK
  10. MOVICOL [Concomitant]
     Active Substance: POLYETHYLENE GLYCOL 3350\POTASSIUM CHLORIDE\SODIUM BICARBONATE\SODIUM CHLORIDE
     Dosage: UNK

REACTIONS (8)
  - Delirium [Recovering/Resolving]
  - Chronic kidney disease [Recovering/Resolving]
  - Incorrect route of product administration [Recovered/Resolved]
  - Infusion site pain [Recovered/Resolved]
  - Metabolic acidosis [Unknown]
  - Infusion site swelling [Recovered/Resolved]
  - Injection site erythema [Recovered/Resolved]
  - Hypertensive nephropathy [Recovering/Resolving]

NARRATIVE: CASE EVENT DATE: 20190710
